FAERS Safety Report 25889239 (Version 1)
Quarter: 2025Q4

REPORT INFORMATION
  Report Type: Spontaneous
  Country: US (occurrence: US)
  Receive Date: 20251007
  Receipt Date: 20251007
  Transmission Date: 20260118
  Serious: Yes (Death)
  Sender: AXSOME THERAPEUTICS
  Company Number: US-AXS-AXS202509-001700

PATIENT
  Age: 52 Year
  Sex: Female

DRUGS (1)
  1. AUVELITY [Suspect]
     Active Substance: BUPROPION HYDROCHLORIDE\DEXTROMETHORPHAN HYDROBROMIDE
     Indication: Major depression
     Dosage: 60/30 DAYS
     Route: 048

REACTIONS (1)
  - Death [Fatal]
